FAERS Safety Report 23486659 (Version 1)
Quarter: 2024Q1

REPORT INFORMATION
  Report Type: Report from Study
  Country: US (occurrence: US)
  Receive Date: 20240206
  Receipt Date: 20240206
  Transmission Date: 20240409
  Serious: No
  Sender: FDA-Public Use
  Company Number: US-ORG100014127-2023000332

PATIENT
  Age: 62 Year
  Sex: Male

DRUGS (18)
  1. LYSODREN [Suspect]
     Active Substance: MITOTANE
     Indication: Adrenal gland cancer
     Dosage: 02 TABLETS DAILY
     Route: 048
     Dates: start: 20221011, end: 20221012
  2. LYSODREN [Suspect]
     Active Substance: MITOTANE
     Indication: Adrenal gland cancer
     Dosage: 03 TABLETS DAILY
     Route: 048
     Dates: start: 20221013, end: 20221015
  3. LYSODREN [Suspect]
     Active Substance: MITOTANE
     Indication: Adrenal gland cancer
     Dosage: 04 TABLETS DAILY
     Route: 048
     Dates: start: 20221016, end: 20221018
  4. LYSODREN [Suspect]
     Active Substance: MITOTANE
     Indication: Adrenal gland cancer
     Dosage: 05 TABLETS DAILY
     Route: 048
     Dates: start: 20221019, end: 20221021
  5. LYSODREN [Suspect]
     Active Substance: MITOTANE
     Indication: Adrenal gland cancer
     Dosage: 06 TABLETS DAILY
     Route: 048
     Dates: start: 20221022
  6. LYSODREN [Suspect]
     Active Substance: MITOTANE
     Indication: Adrenal gland cancer
     Dosage: 05 TABLETS DAILY
     Dates: end: 2023
  7. AMLODIPINE [Concomitant]
     Active Substance: AMLODIPINE BESYLATE
     Indication: Product used for unknown indication
  8. Aspirin low tab 81mg ec [Concomitant]
     Indication: Product used for unknown indication
  9. EZETIMIBE [Concomitant]
     Active Substance: EZETIMIBE
     Indication: Product used for unknown indication
  10. HUMALOG KWIK INJ 100/ML [Concomitant]
     Indication: Product used for unknown indication
  11. Hydrochlorot  tablet 25 mg [Concomitant]
     Indication: Product used for unknown indication
  12. IRBESARTAN [Concomitant]
     Active Substance: IRBESARTAN
     Indication: Product used for unknown indication
  13. Lantus solostar inj 100/ml [Concomitant]
     Indication: Product used for unknown indication
  14. Metformin tab 1000mg [Concomitant]
     Indication: Product used for unknown indication
  15. Rosuvastatin tablet 20 mg [Concomitant]
     Indication: Product used for unknown indication
  16. Vitamin D capsule 1000 UNIT [Concomitant]
     Indication: Product used for unknown indication
  17. Dexamethasone 1 mg tab [Concomitant]
     Indication: Product used for unknown indication
  18. Toujeo max inj 300iu/ml [Concomitant]
     Indication: Product used for unknown indication

REACTIONS (4)
  - Chest pain [Not Recovered/Not Resolved]
  - Arthralgia [Not Recovered/Not Resolved]
  - Decreased appetite [Not Recovered/Not Resolved]
  - Nausea [Not Recovered/Not Resolved]

NARRATIVE: CASE EVENT DATE: 20230301
